FAERS Safety Report 14258615 (Version 1)
Quarter: 2017Q4

REPORT INFORMATION
  Report Type: Spontaneous
  Country: US (occurrence: US)
  Receive Date: 20171206
  Receipt Date: 20171206
  Transmission Date: 20180321
  Serious: Yes (Other)
  Sender: FDA-Public Use
  Company Number: None

PATIENT
  Age: 8 Year
  Sex: Female

DRUGS (1)
  1. CLONIDINE SOLUTION [Suspect]
     Active Substance: CLONIDINE HYDROCHLORIDE
     Indication: PRODUCT USED FOR UNKNOWN INDICATION
     Dosage: OTHER ROUTE:VIA G-TUBE?
     Route: 050
     Dates: start: 20170513, end: 20170513

REACTIONS (4)
  - Drug titration error [None]
  - Lethargy [None]
  - Incorrect product formulation administered [None]
  - Extra dose administered [None]

NARRATIVE: CASE EVENT DATE: 20170515
